FAERS Safety Report 7104645-X (Version None)
Quarter: 2010Q4

REPORT INFORMATION
  Report Type: 
  Country: None (occurrence: None)
  Receive Date: 20101109
  Receipt Date: 20101025
  Transmission Date: 20110411
  Serious: Yes (Life-Threatening, Hospitalization)
  Sender: FDA-Public Use
  Company Number: 1000017099

PATIENT
  Sex: Female
  Weight: 2.7 kg

DRUGS (8)
  1. ESCITALOPRAM [Suspect]
     Dosage: 5 MG (5 MG, 1 IN 1 D) ,ORAL
     Route: 048
     Dates: end: 20080815
  2. TEGRETOL [Suspect]
     Dosage: 200 MG (200 MG, 1 N 1 D), TRANSPLACENTAL
     Route: 064
     Dates: end: 20080815
  3. TRANXENE [Suspect]
     Dosage: 15 MG (15 MG, 1IN 1 D),TRANSPLACENTAL
     Route: 064
     Dates: end: 20080815
  4. TERCIAN(CYAMEMAZINE) (SOLUTION) [Suspect]
     Dosage: 90 MG (90 MG, 1 IN 1 D), TRANSPLACENTAL
     Route: 064
     Dates: end: 20080815
  5. HALDOL [Suspect]
     Dosage: 5 MG (5 MG, 1IN 1 D), TRANSPLACENTAL
     Route: 048
     Dates: start: 20080222, end: 20080815
  6. ABILIFY (ARIP IPRAZOLE ) (ARIPIPRAZOLE) [Concomitant]
  7. FOLIC ACID (FOLIC ACID) (FOLIC ACID) [Concomitant]
  8. ALDOMET [Concomitant]

REACTIONS (8)
  - APGAR SCORE LOW [None]
  - APPARENT DEATH [None]
  - CAESAREAN SECTION [None]
  - FOETAL DISTRESS SYNDROME [None]
  - FOETAL HEART RATE DISORDER [None]
  - JAUNDICE NEONATAL [None]
  - MATERNAL DRUGS AFFECTING FOETUS [None]
  - NEONATAL RESPIRATORY DISTRESS SYNDROME [None]
